FAERS Safety Report 6646946-5 (Version None)
Quarter: 2010Q1

REPORT INFORMATION
  Report Type: 
  Country: None (occurrence: None)
  Receive Date: 20100323
  Receipt Date: 20100315
  Transmission Date: 20100710
  Serious: Yes (Hospitalization, Other)
  Sender: FDA-Public Use
  Company Number: JP-JNJFOC-20100301657

PATIENT
  Age: 60 Year
  Sex: Male

DRUGS (9)
  1. DUROTEP MT [Suspect]
     Indication: CANCER PAIN
     Route: 062
  2. DUROTEP MT [Suspect]
     Route: 062
  3. DUROTEP MT [Suspect]
     Route: 062
  4. OXYCODONE HCL [Suspect]
     Indication: DRUG USE FOR UNKNOWN INDICATION
     Route: 048
  5. CASODEX [Suspect]
     Indication: DRUG USE FOR UNKNOWN INDICATION
     Route: 048
  6. OXYCONTIN [Suspect]
     Indication: DRUG USE FOR UNKNOWN INDICATION
     Route: 048
  7. AMLODIN OD [Concomitant]
     Route: 048
  8. LASIX [Concomitant]
     Route: 048
  9. BASEN [Concomitant]
     Route: 048

REACTIONS (3)
  - CONSTIPATION [None]
  - ILEUS [None]
  - INTESTINAL OBSTRUCTION [None]
